FAERS Safety Report 14225346 (Version 3)
Quarter: 2018Q1

REPORT INFORMATION
  Report Type: Spontaneous
  Country: US (occurrence: US)
  Receive Date: 20171127
  Receipt Date: 20180321
  Transmission Date: 20180508
  Serious: No
  Sender: FDA-Public Use
  Company Number: US-PFIZER INC-2017507502

PATIENT
  Age: 40 Year
  Sex: Male
  Weight: 64.86 kg

DRUGS (4)
  1. ELELYSO [Suspect]
     Active Substance: TALIGLUCERASE ALFA
     Indication: GAUCHER^S DISEASE TYPE I
     Dosage: 3800 IU, CYCLIC (EVERY TWO WEEKS)
     Route: 041
     Dates: start: 2010
  2. ELELYSO [Suspect]
     Active Substance: TALIGLUCERASE ALFA
     Dosage: 3800 IU, CYCLIC (EVERY TWO WEEKS)
     Route: 041
  3. TERBINAFINE. [Concomitant]
     Active Substance: TERBINAFINE
     Dosage: 250 MG, 1X/DAY
     Route: 048
  4. TERBINAFINE. [Concomitant]
     Active Substance: TERBINAFINE
     Indication: ANTIFUNGAL TREATMENT
     Dosage: 250 MG, 1X/DAY
     Route: 048
     Dates: start: 20171101, end: 201802

REACTIONS (3)
  - Pre-existing condition improved [Unknown]
  - Abdominal pain upper [Not Recovered/Not Resolved]
  - Therapeutic response unexpected [Unknown]

NARRATIVE: CASE EVENT DATE: 20180131
